FAERS Safety Report 23779674 (Version 1)
Quarter: 2024Q2

REPORT INFORMATION
  Report Type: Spontaneous
  Country: US (occurrence: US)
  Receive Date: 20240424
  Receipt Date: 20240424
  Transmission Date: 20240716
  Serious: Yes (Hospitalization, Other)
  Sender: FDA-Public Use
  Company Number: US-BAYER-2024A054675

PATIENT
  Age: 44 Year
  Sex: Female

DRUGS (1)
  1. CIPRO [Suspect]
     Active Substance: CIPROFLOXACIN HYDROCHLORIDE
     Indication: Cystitis
     Route: 048
     Dates: start: 20240102, end: 20240105

REACTIONS (11)
  - Hypoaesthesia [None]
  - Hypertension [None]
  - Tachycardia [None]
  - Ligament disorder [None]
  - Tendon disorder [None]
  - Anxiety [None]
  - Neuropathy peripheral [None]
  - Eye pain [None]
  - Gait disturbance [None]
  - Muscle atrophy [None]
  - Tendon discomfort [None]

NARRATIVE: CASE EVENT DATE: 20240105
